FAERS Safety Report 4599629-X (Version None)
Quarter: 2005Q1

REPORT INFORMATION
  Report Type: 
  Country: None (occurrence: None)
  Receive Date: 20050303
  Receipt Date: 20050218
  Transmission Date: 20050727
  Serious: Yes (Other)
  Sender: FDA-Public Use
  Company Number: 2005US-00467

PATIENT
  Age: 1 Year
  Sex: Female
  Weight: 10.9 kg

DRUGS (1)
  1. LORATADINE SYRUP(LORATADINE) SYRUP, 1MG/ML [Suspect]
     Indication: HYPERSENSITIVITY
     Dosage: 2.5 ML, QD, ORAL
     Route: 048
     Dates: start: 20050112, end: 20050218

REACTIONS (1)
  - CONVULSION [None]
